FAERS Safety Report 16144076 (Version 7)
Quarter: 2020Q2

REPORT INFORMATION
  Report Type: Spontaneous
  Country: US (occurrence: US)
  Receive Date: 20190401
  Receipt Date: 20200501
  Transmission Date: 20200713
  Serious: No
  Sender: FDA-Public Use
  Company Number: US-ACTELION-A-NJ2019-187293

PATIENT
  Age: 53 Year
  Sex: Male
  Weight: 92.97 kg

DRUGS (4)
  1. UPTRAVI [Suspect]
     Active Substance: SELEXIPAG
     Indication: PULMONARY ARTERIAL HYPERTENSION
     Dosage: 1600 MCG, BID
     Route: 048
     Dates: start: 20190411
  2. OPSUMIT [Suspect]
     Active Substance: MACITENTAN
     Indication: PULMONARY ARTERIAL HYPERTENSION
     Dosage: 10 MG, QD
     Route: 048
     Dates: start: 20181107
  3. ADCIRCA [Concomitant]
     Active Substance: TADALAFIL
  4. UPTRAVI [Suspect]
     Active Substance: SELEXIPAG
     Dosage: 1200 MCG, BID
     Route: 048
     Dates: start: 20190221

REACTIONS (26)
  - Headache [Unknown]
  - Musculoskeletal pain [Unknown]
  - Pain in jaw [Unknown]
  - Nasopharyngitis [Unknown]
  - Photophobia [Unknown]
  - Cough [Unknown]
  - Myalgia [Unknown]
  - Constipation [Unknown]
  - Diarrhoea [Unknown]
  - Pain [Unknown]
  - Influenza like illness [Unknown]
  - Dyspnoea exertional [Unknown]
  - Bowel movement irregularity [Unknown]
  - Nausea [Unknown]
  - Oropharyngeal pain [Unknown]
  - Taste disorder [Unknown]
  - Visual brightness [Unknown]
  - Gastrooesophageal reflux disease [Unknown]
  - Dizziness exertional [Unknown]
  - Flushing [Unknown]
  - Decreased appetite [Unknown]
  - Photosensitivity reaction [Unknown]
  - Insomnia [Unknown]
  - Nasal congestion [Unknown]
  - Chills [Unknown]
  - Extra dose administered [Unknown]

NARRATIVE: CASE EVENT DATE: 20190223
